FAERS Safety Report 9908936 (Version 1)
Quarter: 2014Q1

REPORT INFORMATION
  Report Type: Spontaneous
  Country: AU (occurrence: None)
  Receive Date: 20140212
  Receipt Date: 20140212
  Transmission Date: 20141002
  Serious: Yes (Other)
  Sender: FDA-Public Use
  Company Number: 2014P1001065

PATIENT
  Sex: Female

DRUGS (2)
  1. FLUOXETINE [Suspect]
  2. QUETIAPINE [Suspect]

REACTIONS (2)
  - Hypophosphataemia [None]
  - Electrocardiogram QT prolonged [None]
